FAERS Safety Report 25015658 (Version 1)
Quarter: 2025Q1

REPORT INFORMATION
  Report Type: Spontaneous
  Country: GB (occurrence: GB)
  Receive Date: 20250227
  Receipt Date: 20250227
  Transmission Date: 20250409
  Serious: No
  Sender: ALKEM
  Company Number: None

PATIENT
  Age: 47 Year
  Sex: Male
  Weight: 84 kg

DRUGS (1)
  1. FINASTERIDE [Suspect]
     Active Substance: FINASTERIDE
     Indication: Prostatitis
     Route: 065
     Dates: start: 20240102, end: 20240201

REACTIONS (1)
  - Palpitations [Not Recovered/Not Resolved]

NARRATIVE: CASE EVENT DATE: 20240114
